FAERS Safety Report 11658581 (Version 2)
Quarter: 2015Q4

REPORT INFORMATION
  Report Type: Report from Study
  Country: BR (occurrence: BR)
  Receive Date: 20151026
  Receipt Date: 20151130
  Transmission Date: 20160304
  Serious: Yes (Death, Hospitalization)
  Sender: FDA-Public Use
  Company Number: BR-ROCHE-1650452

PATIENT
  Age: 18 Year
  Sex: Female

DRUGS (1)
  1. MABTHERA [Suspect]
     Active Substance: RITUXIMAB
     Indication: RHEUMATOID ARTHRITIS
     Route: 042
     Dates: start: 20140321, end: 20150422

REACTIONS (5)
  - Pulmonary embolism [Fatal]
  - Septic shock [Fatal]
  - Lung infection [Unknown]
  - Renal failure [Fatal]
  - Systemic lupus erythematosus [Unknown]

NARRATIVE: CASE EVENT DATE: 20150919
